FAERS Safety Report 25775361 (Version 1)
Quarter: 2025Q3

REPORT INFORMATION
  Report Type: Spontaneous
  Country: JP (occurrence: JP)
  Receive Date: 20250909
  Receipt Date: 20250909
  Transmission Date: 20251021
  Serious: Yes (Other)
  Sender: ALEXION PHARMACEUTICALS
  Company Number: JP-AstraZeneca-CH-00941804A

PATIENT
  Sex: Female

DRUGS (4)
  1. TRUQAP [Suspect]
     Active Substance: CAPIVASERTIB
     Indication: HER2 positive breast cancer
  2. TRUQAP [Suspect]
     Active Substance: CAPIVASERTIB
  3. FASLODEX [Suspect]
     Active Substance: FULVESTRANT
     Route: 065
  4. FASLODEX [Suspect]
     Active Substance: FULVESTRANT

REACTIONS (3)
  - Rash maculo-papular [Recovered/Resolved]
  - Skin disorder [Unknown]
  - Pyrexia [Unknown]
